FAERS Safety Report 4368871-5 (Version None)
Quarter: 2004Q2

REPORT INFORMATION
  Report Type: 
  Country: None (occurrence: None)
  Receive Date: 20040525
  Receipt Date: 20040510
  Transmission Date: 20050107
  Serious: Yes (Hospitalization)
  Sender: FDA-Public Use
  Company Number: US-2004-025472

PATIENT
  Age: 53 Year
  Sex: Female

DRUGS (2)
  1. BETASERON [Suspect]
     Indication: PROGRESSIVE MULTIPLE SCLEROSIS
     Dosage: SEE IMAGE
     Route: 058
     Dates: start: 20040416, end: 20040506
  2. BETASERON [Suspect]
     Indication: PROGRESSIVE MULTIPLE SCLEROSIS
     Dosage: SEE IMAGE
     Route: 058
     Dates: start: 20040512

REACTIONS (5)
  - DYSPHAGIA [None]
  - DYSPHONIA [None]
  - NOSOCOMIAL INFECTION [None]
  - PULMONARY CONGESTION [None]
  - STAPHYLOCOCCAL INFECTION [None]
